FAERS Safety Report 12487605 (Version 1)
Quarter: 2016Q2

REPORT INFORMATION
  Report Type: Spontaneous
  Country: US (occurrence: None)
  Receive Date: 20160621
  Receipt Date: 20160621
  Transmission Date: 20160815
  Serious: Yes (Hospitalization)
  Sender: FDA-Public Use
  Company Number: None

PATIENT
  Age: 75 Year
  Sex: Female
  Weight: 81.65 kg

DRUGS (4)
  1. METOPROLOL, 50 MG [Suspect]
     Active Substance: METOPROLOL
     Indication: CHRONIC KIDNEY DISEASE
     Route: 048
     Dates: start: 20150101, end: 20160410
  2. METOPROLOL, 50 MG [Suspect]
     Active Substance: METOPROLOL
     Indication: HYPERTENSION
     Route: 048
     Dates: start: 20150101, end: 20160410
  3. METOPROLOL, 50 MG [Suspect]
     Active Substance: METOPROLOL
     Indication: CARDIAC FAILURE
     Route: 048
     Dates: start: 20150101, end: 20160410
  4. FUROSEMIDE. [Concomitant]
     Active Substance: FUROSEMIDE

REACTIONS (2)
  - Mental status changes [None]
  - Bradycardia [None]

NARRATIVE: CASE EVENT DATE: 20160411
